FAERS Safety Report 6300162-5 (Version None)
Quarter: 2009Q3

REPORT INFORMATION
  Report Type: 
  Country: None (occurrence: None)
  Receive Date: 20090806
  Receipt Date: 20090728
  Transmission Date: 20100115
  Serious: Yes (Hospitalization)
  Sender: FDA-Public Use
  Company Number: US-BAXTER-2009BH012030

PATIENT
  Age: 3 Year
  Sex: Male

DRUGS (5)
  1. DIANEAL [Suspect]
     Indication: PERITONEAL DIALYSIS
     Route: 033
     Dates: start: 20090628
  2. DIANEAL [Suspect]
     Route: 033
     Dates: start: 20090628
  3. DIANEAL [Suspect]
     Indication: PERITONEAL DIALYSIS
     Route: 033
     Dates: start: 20070101, end: 20090628
  4. HEPARIN [Suspect]
     Indication: PERITONEAL DIALYSIS
     Route: 033
  5. PRIMAXIN [Suspect]
     Indication: PERITONITIS
     Route: 033
     Dates: start: 20090728, end: 20090728

REACTIONS (3)
  - BRADYCARDIA [None]
  - PERITONITIS BACTERIAL [None]
  - PYREXIA [None]
